FAERS Safety Report 5739569-3 (Version None)
Quarter: 2008Q2

REPORT INFORMATION
  Report Type: 
  Country: None (occurrence: None)
  Receive Date: 20080513
  Receipt Date: 20080506
  Transmission Date: 20081010
  Serious: Yes (Other)
  Sender: FDA-Public Use
  Company Number: 2008SP002005

PATIENT
  Age: 63 Year
  Sex: Female

DRUGS (3)
  1. TEMODAL [Suspect]
     Indication: GLIOBLASTOMA MULTIFORME
     Dosage: 350 MG
     Dates: start: 20070730, end: 20070914
  2. TEMODAL [Suspect]
     Indication: GLIOBLASTOMA MULTIFORME
     Dosage: 350 MG
     Dates: start: 20071022, end: 20080104
  3. BACTRIM [Suspect]
     Dates: start: 20070814

REACTIONS (3)
  - BLOOD SODIUM DECREASED [None]
  - CARDIAC FAILURE [None]
  - THROMBOCYTOPENIA [None]
